FAERS Safety Report 4957737-5 (Version None)
Quarter: 2006Q1

REPORT INFORMATION
  Report Type: 
  Country: None (occurrence: None)
  Receive Date: 20060328
  Receipt Date: 20060328
  Transmission Date: 20060701
  Serious: Yes (Other)
  Sender: FDA-Public Use
  Company Number: None

PATIENT
  Sex: Female
  Weight: 58.9676 kg

DRUGS (1)
  1. ZICAM NO DRIP LIQUID NASEL GEL  COLD REMEDY [Suspect]
     Indication: NASOPHARYNGITIS
     Dosage: 1 PUMP EACH NASTRAL 1 ONCE DAY NOSE
     Route: 045
     Dates: start: 20060312, end: 20060313

REACTIONS (2)
  - DECREASED APPETITE [None]
  - DYSGEUSIA [None]
